FAERS Safety Report 5945903-1 (Version None)
Quarter: 2008Q4

REPORT INFORMATION
  Report Type: 
  Country: None (occurrence: None)
  Receive Date: 20081106
  Receipt Date: 20081028
  Transmission Date: 20090506
  Serious: No
  Sender: FDA-Public Use
  Company Number: 2008-185943-NL

PATIENT
  Sex: Female

DRUGS (3)
  1. MIRTAZAPINE [Suspect]
     Dosage: 15 MG
  2. AMITRIPTYLINE HCL [Suspect]
     Dosage: 200 MG
  3. LORAZEPAM [Suspect]
     Dosage: 1.5 MG

REACTIONS (1)
  - LONG QT SYNDROME [None]
